FAERS Safety Report 6000231-3 (Version None)
Quarter: 2008Q4

REPORT INFORMATION
  Report Type: 
  Country: None (occurrence: None)
  Receive Date: 20081211
  Receipt Date: 20081211
  Transmission Date: 20090506
  Serious: Yes (Hospitalization)
  Sender: FDA-Public Use
  Company Number: None

PATIENT
  Sex: Female
  Weight: 42.3 kg

DRUGS (3)
  1. CYTARABINE [Suspect]
     Dosage: 10240 MG
  2. IDARUBICIN HCL [Suspect]
     Dosage: 45 MG
  3. LESTAURTINIB [Suspect]
     Dosage: 2240 MG

REACTIONS (26)
  - ABDOMINAL PAIN [None]
  - ACIDOSIS [None]
  - ALKALOSIS [None]
  - ANAEMIA [None]
  - ASCITES [None]
  - BACTERIAL INFECTION [None]
  - BLOOD CREATININE INCREASED [None]
  - BLOOD CULTURE POSITIVE [None]
  - BODY TEMPERATURE INCREASED [None]
  - COLITIS [None]
  - DILATATION VENTRICULAR [None]
  - GENERALISED OEDEMA [None]
  - HYPOKALAEMIA [None]
  - HYPOTENSION [None]
  - HYPOXIA [None]
  - LEFT VENTRICULAR DYSFUNCTION [None]
  - LUNG INFECTION [None]
  - LYMPHOPENIA [None]
  - MALAISE [None]
  - MITRAL VALVE INCOMPETENCE [None]
  - MYALGIA [None]
  - NEUTROPHIL COUNT DECREASED [None]
  - PLEURAL EFFUSION [None]
  - PULMONARY CONGESTION [None]
  - TACHYCARDIA [None]
  - THROMBOCYTOPENIA [None]
